FAERS Safety Report 23149130 (Version 1)
Quarter: 2023Q4

REPORT INFORMATION
  Report Type: Spontaneous
  Country: US (occurrence: US)
  Receive Date: 20231106
  Receipt Date: 20231106
  Transmission Date: 20240109
  Serious: No
  Sender: FDA-Public Use
  Company Number: US-PARATEK PHARMACEUTICALS, INC.-2022PTK00339

PATIENT
  Age: 100 Year
  Sex: Female

DRUGS (2)
  1. NUZYRA [Suspect]
     Active Substance: OMADACYCLINE
     Indication: Cellulitis
     Dosage: 450 MG, ONCE
     Route: 048
     Dates: start: 20220914, end: 20220914
  2. NUZYRA [Suspect]
     Active Substance: OMADACYCLINE
     Dosage: 300 MG, 1X/DAY FOR 12 DAYS
     Route: 048
     Dates: start: 20220915, end: 20220926

REACTIONS (2)
  - Therapeutic product effect incomplete [Recovered/Resolved]
  - Incorrect dose administered [Recovered/Resolved]

NARRATIVE: CASE EVENT DATE: 20220914
